FAERS Safety Report 5410047-4 (Version None)
Quarter: 2007Q3

REPORT INFORMATION
  Report Type: 
  Country: None (occurrence: None)
  Receive Date: 20070713
  Receipt Date: 20070606
  Transmission Date: 20080115
  Serious: No
  Sender: FDA-Public Use
  Company Number: 2007SP002124

PATIENT
  Age: 34 Year
  Sex: Male
  Weight: 102.9665 kg

DRUGS (6)
  1. LUNESTA [Suspect]
     Indication: INSOMNIA
     Dosage: 2 MG; 1X; ORAL; 2 MG; HS; ORAL; 2 MG; PRN; ORAL
     Route: 048
     Dates: start: 20070401, end: 20070401
  2. LUNESTA [Suspect]
     Indication: INSOMNIA
     Dosage: 2 MG; 1X; ORAL; 2 MG; HS; ORAL; 2 MG; PRN; ORAL
     Route: 048
     Dates: start: 20070604
  3. LUNESTA [Suspect]
     Indication: INSOMNIA
     Dosage: 2 MG; 1X; ORAL; 2 MG; HS; ORAL; 2 MG; PRN; ORAL
     Route: 048
     Dates: start: 20070604
  4. LITHIUM CARBONATE [Concomitant]
  5. LEXAPRO [Concomitant]
  6. VICODIN [Concomitant]

REACTIONS (2)
  - DYSGEUSIA [None]
  - INSOMNIA [None]
